FAERS Safety Report 17948796 (Version 4)
Quarter: 2025Q3

REPORT INFORMATION
  Report Type: Spontaneous
  Country: EU (occurrence: EU)
  Receive Date: 20200626
  Receipt Date: 20250702
  Transmission Date: 20251020
  Serious: Yes (Other)
  Sender: AUROBINDO
  Company Number: EU-LESVI-2020073256

PATIENT
  Age: 14 Year
  Sex: Female

DRUGS (19)
  1. ARIPIPRAZOLE [Suspect]
     Active Substance: ARIPIPRAZOLE
     Indication: Insomnia
     Route: 065
     Dates: start: 201710
  2. ARIPIPRAZOLE [Suspect]
     Active Substance: ARIPIPRAZOLE
     Indication: Hypomania
     Route: 065
  3. ARIPIPRAZOLE [Suspect]
     Active Substance: ARIPIPRAZOLE
     Indication: Psychomotor hyperactivity
  4. OLANZAPINE [Suspect]
     Active Substance: OLANZAPINE
     Indication: Depression
     Route: 065
     Dates: start: 2018, end: 201812
  5. OLANZAPINE [Suspect]
     Active Substance: OLANZAPINE
     Indication: Bipolar disorder
  6. QUETIAPINE [Suspect]
     Active Substance: QUETIAPINE
     Indication: Product used for unknown indication
     Route: 065
     Dates: start: 201805
  7. RISPERIDONE [Suspect]
     Active Substance: RISPERIDONE
     Indication: Insomnia
     Route: 065
     Dates: start: 201708, end: 201710
  8. RISPERIDONE [Suspect]
     Active Substance: RISPERIDONE
     Indication: Psychomotor hyperactivity
  9. RISPERIDONE [Suspect]
     Active Substance: RISPERIDONE
     Indication: Hypomania
  10. CLONAZEPAM [Concomitant]
     Active Substance: CLONAZEPAM
     Indication: Anxiety
     Dosage: 1.5 MILLIGRAM, ONCE A DAY
     Route: 065
  11. LITHIUM [Concomitant]
     Active Substance: LITHIUM
     Indication: Depression
     Route: 065
  12. LITHIUM [Concomitant]
     Active Substance: LITHIUM
     Indication: Bipolar disorder
     Route: 065
     Dates: start: 2018
  13. LITHIUM [Concomitant]
     Active Substance: LITHIUM
     Route: 065
     Dates: start: 2018
  14. LITHIUM [Concomitant]
     Active Substance: LITHIUM
     Route: 065
     Dates: start: 2018, end: 2018
  15. SERTRALINE [Concomitant]
     Active Substance: SERTRALINE HYDROCHLORIDE
     Indication: Mixed anxiety and depressive disorder
     Route: 065
     Dates: start: 201706
  16. SERTRALINE [Concomitant]
     Active Substance: SERTRALINE HYDROCHLORIDE
     Route: 065
     Dates: start: 201710
  17. VENLAFAXINE [Concomitant]
     Active Substance: VENLAFAXINE HYDROCHLORIDE
     Indication: Product used for unknown indication
     Route: 065
     Dates: start: 201801
  18. VENLAFAXINE [Concomitant]
     Active Substance: VENLAFAXINE HYDROCHLORIDE
     Route: 065
     Dates: start: 201805
  19. MIRTAZAPINE [Concomitant]
     Active Substance: MIRTAZAPINE
     Indication: Antidepressant therapy
     Route: 065

REACTIONS (11)
  - Hyperprolactinaemia [Unknown]
  - Hyperphagia [Unknown]
  - Weight increased [Unknown]
  - Hypotension [Unknown]
  - Fatigue [Unknown]
  - Increased appetite [Unknown]
  - Menstrual disorder [Unknown]
  - Depressive symptom [Unknown]
  - Anxiety [Unknown]
  - Headache [Unknown]
  - Drug ineffective [Unknown]

NARRATIVE: CASE EVENT DATE: 20181201
